FAERS Safety Report 4994871-8 (Version None)
Quarter: 2006Q2

REPORT INFORMATION
  Report Type: 
  Country: None (occurrence: None)
  Receive Date: 20060508
  Receipt Date: 20060501
  Transmission Date: 20061013
  Serious: Yes (Other)
  Sender: FDA-Public Use
  Company Number: US-BRISTOL-MYERS SQUIBB COMPANY-13364237

PATIENT

DRUGS (1)
  1. ERBITUX [Suspect]

REACTIONS (2)
  - HAEMATURIA [None]
  - INFUSION RELATED REACTION [None]
